FAERS Safety Report 8486112-4 (Version None)
Quarter: 2012Q3

REPORT INFORMATION
  Report Type: 
  Country: None (occurrence: None)
  Receive Date: 20120703
  Receipt Date: 20120621
  Transmission Date: 20120928
  Serious: Yes (Hospitalization)
  Sender: FDA-Public Use
  Company Number: FR-ELI_LILLY_AND_COMPANY-FR201111004169

PATIENT
  Age: 79 Year
  Sex: Female
  Weight: 90 kg

DRUGS (7)
  1. PRAVIGARD PAC (COPACKAGED) [Concomitant]
     Indication: CARDIAC DISORDER
     Dosage: UNK, QD
     Dates: start: 20050101
  2. FUROSEMIDE [Concomitant]
     Indication: CARDIAC DISORDER
     Dosage: UNK, QD
     Dates: start: 20050101
  3. EXFORGE [Concomitant]
     Indication: CARDIAC DISORDER
     Dosage: UNK, QD
     Dates: start: 20050101
  4. FORADIL [Concomitant]
     Indication: CHRONIC OBSTRUCTIVE PULMONARY DISEASE
     Dosage: UNK, BID
     Route: 055
     Dates: start: 20050101
  5. MOLSIDOMINE [Concomitant]
     Indication: CARDIAC DISORDER
     Dosage: UNK, TID
     Dates: start: 20050101
  6. FORTEO [Suspect]
     Indication: OSTEOPOROSIS
     Dosage: 20 UG, QD
     Route: 058
     Dates: start: 20100614
  7. BUDESONIDE [Concomitant]
     Indication: CHRONIC OBSTRUCTIVE PULMONARY DISEASE
     Dosage: UNK, BID
     Route: 055
     Dates: start: 20050101

REACTIONS (2)
  - IRON DEFICIENCY ANAEMIA [None]
  - HYPOXIA [None]
